FAERS Safety Report 6305141-X (Version None)
Quarter: 2009Q3

REPORT INFORMATION
  Report Type: 
  Country: None (occurrence: None)
  Receive Date: 20090811
  Receipt Date: 20090728
  Transmission Date: 20100115
  Serious: Yes (Hospitalization)
  Sender: FDA-Public Use
  Company Number: US-ALEXION-A200900565

PATIENT
  Sex: Male

DRUGS (14)
  1. SOLIRIS [Suspect]
     Indication: PAROXYSMAL NOCTURNAL HAEMOGLOBINURIA
     Dosage: 600 MG, QW X 4
     Route: 042
     Dates: start: 20080814
  2. SOLIRIS [Suspect]
     Dosage: 900 MG, Q2W
     Route: 042
     Dates: start: 20080911
  3. CYCLOSPORINE [Concomitant]
     Indication: APLASTIC ANAEMIA
     Dosage: 25 MG, 2 TABS MORNING AND 6 TABS EVENING
  4. CYCLOSPORINE [Concomitant]
     Dosage: 100 MG, BID (QAM AND QPM)
  5. PENTOXIFYLLINE [Concomitant]
     Indication: APLASTIC ANAEMIA
     Dosage: 400 MG, QD
     Route: 048
  6. PENTOXIFYLLINE [Concomitant]
     Dosage: 400 MG, TID
     Route: 048
  7. PRILOSEC [Concomitant]
     Dosage: 20 MG, QD
  8. NEURONTIN [Concomitant]
     Dosage: 300 MG, TID
  9. NEURONTIN [Concomitant]
     Dosage: 600 MG, TID
     Route: 048
  10. FOLIC ACID [Concomitant]
     Dosage: 1 MG, QD
     Route: 048
  11. TYLENOL (CAPLET) [Concomitant]
     Dosage: 650 MG, 6 HOURS/PRN
  12. SIMETHICONE [Concomitant]
  13. COLACE [Concomitant]
     Dosage: 100 MG, BID
  14. VICODIN [Concomitant]
     Indication: PAIN
     Dosage: UNK, PRN

REACTIONS (26)
  - ALANINE AMINOTRANSFERASE INCREASED [None]
  - ANION GAP DECREASED [None]
  - ASPARTATE AMINOTRANSFERASE INCREASED [None]
  - BLOOD BILIRUBIN INCREASED [None]
  - BLOOD CALCIUM DECREASED [None]
  - BLOOD GLUCOSE INCREASED [None]
  - BLOOD LACTATE DEHYDROGENASE INCREASED [None]
  - BLOOD POTASSIUM DECREASED [None]
  - CARBON DIOXIDE DECREASED [None]
  - COUGH [None]
  - EOSINOPHIL COUNT DECREASED [None]
  - FATIGUE [None]
  - HAEMATOCRIT DECREASED [None]
  - HAEMOGLOBIN DECREASED [None]
  - LABORATORY TEST ABNORMAL [None]
  - LYMPHOCYTE COUNT DECREASED [None]
  - MONOCYTE COUNT DECREASED [None]
  - NAUSEA [None]
  - OEDEMA [None]
  - PLATELET COUNT DECREASED [None]
  - PYREXIA [None]
  - RED BLOOD CELL COUNT DECREASED [None]
  - URINE ANALYSIS ABNORMAL [None]
  - VIRAL INFECTION [None]
  - VITAMIN B12 INCREASED [None]
  - WHITE BLOOD CELL COUNT DECREASED [None]
